FAERS Safety Report 4744568-4 (Version None)
Quarter: 2005Q3

REPORT INFORMATION
  Report Type: 
  Country: None (occurrence: None)
  Receive Date: 20050812
  Receipt Date: 20050509
  Transmission Date: 20060218
  Serious: Yes (Hospitalization, Other)
  Sender: FDA-Public Use
  Company Number: FR-ABBOTT-05P-056-0300570-00

PATIENT
  Sex: Female
  Weight: 2.5 kg

DRUGS (9)
  1. NORVIR [Suspect]
     Indication: DRUG EXPOSURE DURING PREGNANCY
  2. DIDANOSINE [Suspect]
     Indication: DRUG EXPOSURE DURING PREGNANCY
  3. ATAZANAVIR [Suspect]
     Indication: DRUG EXPOSURE DURING PREGNANCY
  4. TENOFOVIR [Suspect]
     Indication: DRUG EXPOSURE DURING PREGNANCY
  5. LAMIVUDINE [Suspect]
     Indication: DRUG EXPOSURE DURING PREGNANCY
  6. ZIDOVUDINE [Concomitant]
     Indication: PROPHYLAXIS AGAINST HIV INFECTION
     Dosage: 1.5MG/KG 4/DAY PER ORAL SOLUTION DURING 36 HOURS, 1.65 MG/KG 2 /DAY IN 5% SERUM
     Route: 048
     Dates: start: 20050328
  7. ZIDOVUDINE [Concomitant]
     Dosage: 1.5MG/KG 4/DAY PER ORAL SOLUTION DURING 36 HOURS, 1.65 MG/KG 2 /DAY IN 5% SERUM
     Route: 048
     Dates: start: 20050404
  8. ZIDOVUDINE [Concomitant]
     Dosage: 1.5 MG/KG 2/DAY DILUTED IN PPI WATER
     Route: 048
     Dates: start: 20050412
  9. ZIDOVUDINE [Concomitant]
     Dosage: DECREASED TO 0.7 MG/KG/8H
     Dates: start: 20050401

REACTIONS (12)
  - ANAEMIA [None]
  - CAESAREAN SECTION [None]
  - DRUG EXPOSURE DURING PREGNANCY [None]
  - DRUG LEVEL INCREASED [None]
  - ENTEROCOLITIS HAEMORRHAGIC [None]
  - FOETAL HEART RATE ABNORMAL [None]
  - HYPOGLYCAEMIA [None]
  - HYPOTONIA NEONATAL [None]
  - JAUNDICE [None]
  - NEONATAL DISORDER [None]
  - PREMATURE LABOUR [None]
  - TREMOR [None]
